FAERS Safety Report 16089164 (Version 1)
Quarter: 2019Q1

REPORT INFORMATION
  Report Type: Spontaneous
  Country: JP (occurrence: JP)
  Receive Date: 20190319
  Receipt Date: 20190319
  Transmission Date: 20190418
  Serious: Yes (Other)
  Sender: FDA-Public Use
  Company Number: JP-SA-2019SA069108

PATIENT
  Age: 41 Year
  Sex: Male

DRUGS (2)
  1. THYMOGLOBULINE [Suspect]
     Active Substance: LAPINE T-LYMPHOCYTE IMMUNE GLOBULIN
     Indication: APLASTIC ANAEMIA
     Route: 041
  2. CICLOSPORIN [Suspect]
     Active Substance: CYCLOSPORINE
     Indication: APLASTIC ANAEMIA
     Route: 065

REACTIONS (8)
  - Restlessness [Recovering/Resolving]
  - Posterior reversible encephalopathy syndrome [Recovering/Resolving]
  - Visual impairment [Recovering/Resolving]
  - Blood pressure increased [Recovering/Resolving]
  - Subarachnoid haemorrhage [Recovering/Resolving]
  - Altered state of consciousness [Recovering/Resolving]
  - Reversible cerebral vasoconstriction syndrome [Recovering/Resolving]
  - Headache [Recovering/Resolving]
